FAERS Safety Report 6339377-9 (Version None)
Quarter: 2009Q3

REPORT INFORMATION
  Report Type: 
  Country: None (occurrence: None)
  Receive Date: 20090828
  Receipt Date: 20090511
  Transmission Date: 20100115
  Serious: Yes (Hospitalization)
  Sender: FDA-Public Use
  Company Number: KADN20090035

PATIENT
  Age: 61 Year
  Sex: Female
  Weight: 82.5547 kg

DRUGS (3)
  1. KADIAN [Suspect]
     Indication: PAIN
     Dosage: 60 MG, 1 IN 12 HR, PER ORAL
     Route: 048
     Dates: start: 20080919, end: 20090101
  2. NORCO [Concomitant]
  3. ADVAIR DISKUS 100/50 [Concomitant]

REACTIONS (4)
  - ASTHMA [None]
  - CONFUSIONAL STATE [None]
  - CONSTIPATION [None]
  - SOMNOLENCE [None]
